FAERS Safety Report 5843998-7 (Version None)
Quarter: 2008Q3

REPORT INFORMATION
  Report Type: 
  Country: None (occurrence: None)
  Receive Date: 20080813
  Receipt Date: 20080806
  Transmission Date: 20090109
  Serious: Yes (Death)
  Sender: FDA-Public Use
  Company Number: JP-BRISTOL-MYERS SQUIBB COMPANY-14293302

PATIENT
  Age: 56 Year
  Sex: Male

DRUGS (1)
  1. SPRYCEL [Suspect]
     Indication: CHRONIC MYELOID LEUKAEMIA
     Dosage: INITIATED ON 15DEC06 AT 70MG,BID; DOSE REDUCED ON 02FEB07-14JUN08 TO 50MG,BID,ORAL.
     Route: 048
     Dates: start: 20070202, end: 20080614

REACTIONS (2)
  - PNEUMONIA [None]
  - PULMONARY CONGESTION [None]
